FAERS Safety Report 24389727 (Version 1)
Quarter: 2024Q4

REPORT INFORMATION
  Report Type: Spontaneous
  Country: PT (occurrence: PT)
  Receive Date: 20241003
  Receipt Date: 20241003
  Transmission Date: 20250115
  Serious: Yes (Hospitalization)
  Sender: ACCORD
  Company Number: PT-Accord-448377

PATIENT
  Age: 18 Year
  Sex: Female

DRUGS (3)
  1. MYCOPHENOLIC ACID [Suspect]
     Active Substance: MYCOPHENOLIC ACID
     Indication: Complications of transplanted kidney
  2. PREDNISOLONE [Concomitant]
     Active Substance: PREDNISOLONE
     Indication: Complications of transplanted kidney
  3. TACROLIMUS [Concomitant]
     Active Substance: TACROLIMUS
     Indication: Complications of transplanted kidney

REACTIONS (2)
  - Normochromic normocytic anaemia [Recovered/Resolved]
  - Enterocolitis [Recovered/Resolved]
